FAERS Safety Report 9036251 (Version 1)
Quarter: 2013Q1

REPORT INFORMATION
  Report Type: Spontaneous
  Country: US (occurrence: None)
  Receive Date: 20130117
  Receipt Date: 20130117
  Transmission Date: 20140127
  Serious: Yes (Other)
  Sender: FDA-Public Use
  Company Number: None

PATIENT
  Age: 52 Year
  Sex: Female
  Weight: 59.88 kg

DRUGS (2)
  1. CARISO PRODOL 350 [Suspect]
     Dosage: 1 Q6H PRN
     Route: 048
     Dates: start: 20121130, end: 20121203
  2. CARISO PRODOL 350 [Suspect]
     Dosage: 1 Q6H PRN
     Route: 048
     Dates: start: 20121130, end: 20121203

REACTIONS (3)
  - Headache [None]
  - Drug ineffective [None]
  - Product substitution issue [None]
